FAERS Safety Report 6034050-9 (Version None)
Quarter: 2009Q1

REPORT INFORMATION
  Report Type: 
  Country: None (occurrence: None)
  Receive Date: 20090112
  Receipt Date: 20090107
  Transmission Date: 20090719
  Serious: Yes (Hospitalization)
  Sender: FDA-Public Use
  Company Number: US-BIOGENIDEC-2008BI030424

PATIENT
  Age: 43 Year
  Sex: Female

DRUGS (7)
  1. TYSABRI [Suspect]
     Indication: MULTIPLE SCLEROSIS
     Route: 042
     Dates: start: 20071022
  2. METHADONE HCL [Concomitant]
     Indication: DRUG USE FOR UNKNOWN INDICATION
  3. NEXIUM [Concomitant]
     Indication: DRUG USE FOR UNKNOWN INDICATION
  4. AVINZA [Concomitant]
     Indication: DRUG USE FOR UNKNOWN INDICATION
  5. VALIUM [Concomitant]
     Indication: DRUG USE FOR UNKNOWN INDICATION
  6. AMBIEN [Concomitant]
     Indication: DRUG USE FOR UNKNOWN INDICATION
  7. PROVIGIL [Concomitant]
     Indication: DRUG USE FOR UNKNOWN INDICATION

REACTIONS (3)
  - LEUKOCYTOSIS [None]
  - VAGINAL INFECTION [None]
  - VIRAL INFECTION [None]
